FAERS Safety Report 8821800 (Version 1)
Quarter: 2012Q4

REPORT INFORMATION
  Report Type: Report from Study
  Country: ES (occurrence: ES)
  Receive Date: 20121002
  Receipt Date: 20121002
  Transmission Date: 20130627
  Serious: Yes (Other)
  Sender: FDA-Public Use
  Company Number: ES-ASTELLAS-2012US009767

PATIENT
  Age: 74 Year
  Sex: Female

DRUGS (2)
  1. ERLOTINIB TABLET [Suspect]
     Indication: LUNG ADENOCARCINOMA STAGE IV
     Dosage: 150 mg, UID/QD
     Route: 048
  2. ERLOTINIB TABLET [Suspect]
     Dosage: 150 mg, UID/QD

REACTIONS (3)
  - Ectropion [Not Recovered/Not Resolved]
  - Corneal epithelium defect [Recovered/Resolved]
  - Conjunctival hyperaemia [Unknown]
